FAERS Safety Report 9089502 (Version 1)
Quarter: 2013Q1

REPORT INFORMATION
  Report Type: Report from Study
  Country: US (occurrence: US)
  Receive Date: 20130201
  Receipt Date: 20130201
  Transmission Date: 20140127
  Serious: No
  Sender: FDA-Public Use
  Company Number: US-ABBOTT-12P-163-1019617-00

PATIENT
  Sex: Male
  Weight: 86.26 kg

DRUGS (6)
  1. HUMIRA [Suspect]
     Indication: CROHN^S DISEASE
     Route: 058
     Dates: start: 2009, end: 2012
  2. HUMIRA [Suspect]
     Route: 058
     Dates: start: 2012, end: 2012
  3. METHOTREXATE [Concomitant]
     Indication: CROHN^S DISEASE
     Dosage: TAKES OPPOSITE OF HUMIRA
  4. FOLIC ACID [Concomitant]
     Indication: POLYMEDICATION
  5. VITAMIN D NOS [Concomitant]
     Indication: PRODUCT USED FOR UNKNOWN INDICATION
  6. PROBIOTICS [Concomitant]
     Indication: PRODUCT USED FOR UNKNOWN INDICATION

REACTIONS (2)
  - Unevaluable investigation [Not Recovered/Not Resolved]
  - Crohn^s disease [Not Recovered/Not Resolved]
